FAERS Safety Report 6957647-8 (Version None)
Quarter: 2010Q3

REPORT INFORMATION
  Report Type: 
  Country: None (occurrence: None)
  Receive Date: 20100831
  Receipt Date: 20100823
  Transmission Date: 20110219
  Serious: Yes (Hospitalization, Other)
  Sender: FDA-Public Use
  Company Number: US-ELI_LILLY_AND_COMPANY-US201008007213

PATIENT
  Sex: Female

DRUGS (8)
  1. HUMALOG MIX 75/25 [Suspect]
     Indication: TYPE 2 DIABETES MELLITUS
     Dosage: 32 U, EACH MORNING
  2. HUMALOG MIX 75/25 [Suspect]
     Dosage: 45 U, EACH EVENING
  3. HUMALOG MIX 75/25 [Suspect]
     Dosage: 32 U, EACH MORNING
  4. HUMALOG MIX 75/25 [Suspect]
     Dosage: 45 U, EACH EVENING
  5. HUMALOG [Suspect]
     Indication: TYPE 2 DIABETES MELLITUS
     Dosage: UNK, AS NEEDED
  6. CIPRO [Concomitant]
  7. GLUCOTROL [Concomitant]
  8. MACRODANTIN [Concomitant]
     Dosage: UNK, OTHER

REACTIONS (14)
  - ANAPHYLACTIC SHOCK [None]
  - BLADDER PAIN [None]
  - BLOOD GLUCOSE DECREASED [None]
  - BLOOD GLUCOSE INCREASED [None]
  - DRUG HYPERSENSITIVITY [None]
  - DRUG PRESCRIBING ERROR [None]
  - EXPIRED DRUG ADMINISTERED [None]
  - KIDNEY INFECTION [None]
  - MENISCUS LESION [None]
  - PULMONARY MASS [None]
  - PYREXIA [None]
  - URETERAL DISORDER [None]
  - URINARY TRACT INFECTION [None]
  - URTICARIA [None]
